FAERS Safety Report 9024321 (Version 1)
Quarter: 2013Q1

REPORT INFORMATION
  Report Type: Spontaneous
  Country: AR (occurrence: AR)
  Receive Date: 20130121
  Receipt Date: 20130121
  Transmission Date: 20140127
  Serious: Yes (Other)
  Sender: FDA-Public Use
  Company Number: PHHY2013AR003872

PATIENT
  Age: 57 None
  Sex: Female

DRUGS (1)
  1. TRILEPTAL [Suspect]
     Indication: MOTOR DYSFUNCTION
     Dosage: 300 MG, BID
     Route: 048
     Dates: start: 20121127, end: 20130112

REACTIONS (7)
  - Fall [Recovering/Resolving]
  - Psychogenic seizure [Unknown]
  - Nervousness [Recovering/Resolving]
  - Fear [Recovering/Resolving]
  - Speech disorder [Recovering/Resolving]
  - Face injury [Recovering/Resolving]
  - Drug ineffective [Recovering/Resolving]
